FAERS Safety Report 8225819-0 (Version None)
Quarter: 2012Q1

REPORT INFORMATION
  Report Type: 
  Country: None (occurrence: None)
  Receive Date: 20120321
  Receipt Date: 20120313
  Transmission Date: 20120608
  Serious: Yes (Death, Hospitalization)
  Sender: FDA-Public Use
  Company Number: US-ACTELION-A-US2011-52135

PATIENT

DRUGS (7)
  1. EPOPROSTENOL SODIUM [Suspect]
     Dosage: 32 NG/KG, PER MIN
     Route: 042
  2. BUMEX [Concomitant]
  3. MIDODRINE HYDROCHLORIDE [Concomitant]
  4. ARANESP [Concomitant]
  5. EPOPROSTENOL SODIUM [Suspect]
     Dosage: 39 NG/KG, PER MIN
     Route: 042
     Dates: end: 20120312
  6. EPOPROSTENOL SODIUM [Suspect]
     Indication: PULMONARY ARTERIAL HYPERTENSION
     Dosage: 29 NG/KG, PER MIN
     Route: 042
     Dates: start: 20101224
  7. LETAIRIS [Suspect]

REACTIONS (15)
  - DEATH [None]
  - RIGHT ATRIAL DILATATION [None]
  - PERICARDIAL EFFUSION [None]
  - OEDEMA [None]
  - BRAIN NATRIURETIC PEPTIDE INCREASED [None]
  - FLUID OVERLOAD [None]
  - HYPERDYNAMIC LEFT VENTRICLE [None]
  - CHEST DISCOMFORT [None]
  - OEDEMA PERIPHERAL [None]
  - DILATATION VENTRICULAR [None]
  - CONDITION AGGRAVATED [None]
  - PULMONARY OEDEMA [None]
  - DYSPNOEA [None]
  - CARDIOMEGALY [None]
  - PULMONARY ARTERY DILATATION [None]
